FAERS Safety Report 14255327 (Version 2)
Quarter: 2018Q2

REPORT INFORMATION
  Report Type: Spontaneous
  Country: GB (occurrence: GB)
  Receive Date: 20171206
  Receipt Date: 20180626
  Transmission Date: 20180711
  Serious: Yes (Congenital Anomaly)
  Sender: FDA-Public Use
  Company Number: GB-GLAXOSMITHKLINE-GB2017183088

PATIENT
  Sex: Male

DRUGS (2)
  1. LAMOTRIGINE. [Suspect]
     Active Substance: LAMOTRIGINE
     Indication: PRODUCT USED FOR UNKNOWN INDICATION
     Dosage: 50 MG, UNK
     Route: 064
  2. VALPROATE SODIUM. [Suspect]
     Active Substance: VALPROATE SODIUM
     Indication: PRODUCT USED FOR UNKNOWN INDICATION
     Dosage: 2000 MG, UNK
     Route: 064

REACTIONS (3)
  - Foetal exposure during pregnancy [Unknown]
  - Attention deficit/hyperactivity disorder [Unknown]
  - Congenital anomaly [Unknown]
